FAERS Safety Report 19243090 (Version 1)
Quarter: 2021Q2

REPORT INFORMATION
  Report Type: Spontaneous
  Country: US (occurrence: US)
  Receive Date: 20210511
  Receipt Date: 20210511
  Transmission Date: 20210717
  Serious: No
  Sender: FDA-Public Use
  Company Number: US-UNITED THERAPEUTICS-UNT-2021-008289

PATIENT
  Sex: Female
  Weight: 60.32 kg

DRUGS (6)
  1. REMODULIN [Suspect]
     Active Substance: TREPROSTINIL
     Indication: PULMONARY ARTERIAL HYPERTENSION
     Dosage: UNK, CONTINUING
     Route: 041
     Dates: start: 20210121
  2. REMODULIN [Suspect]
     Active Substance: TREPROSTINIL
     Dosage: UNK, CONTINUING (12.6 MILLITERS)
     Route: 041
  3. TADALAFIL. [Concomitant]
     Active Substance: TADALAFIL
     Indication: PRODUCT USED FOR UNKNOWN INDICATION
     Route: 065
  4. REMODULIN [Suspect]
     Active Substance: TREPROSTINIL
     Dosage: 0.060 ?G/KG, CONTINUING
     Route: 041
  5. REMODULIN [Suspect]
     Active Substance: TREPROSTINIL
     Dosage: UNK, CONTINUING (3000 MILLITERS PER DAY)
     Route: 041
  6. OPSUMIT [Concomitant]
     Active Substance: MACITENTAN
     Indication: PRODUCT USED FOR UNKNOWN INDICATION
     Dosage: UNK
     Route: 065

REACTIONS (10)
  - Accidental overdose [Unknown]
  - Flushing [Recovering/Resolving]
  - Dizziness [Unknown]
  - Chest pain [Recovered/Resolved]
  - Device programming error [Unknown]
  - Blood pressure systolic decreased [Unknown]
  - Incorrect drug administration rate [Unknown]
  - Headache [Recovering/Resolving]
  - Heart rate increased [Recovering/Resolving]
  - Pain in jaw [Not Recovered/Not Resolved]
